FAERS Safety Report 13758200 (Version 3)
Quarter: 2017Q3

REPORT INFORMATION
  Report Type: Spontaneous
  Country: US (occurrence: US)
  Receive Date: 20170717
  Receipt Date: 20170913
  Transmission Date: 20171127
  Serious: Yes (Hospitalization, Other)
  Sender: FDA-Public Use
  Company Number: US-GLAXOSMITHKLINE-US2017107017

PATIENT
  Age: 93 Year
  Sex: Female
  Weight: 136 kg

DRUGS (2)
  1. DICLOFENAC SODIUM. [Suspect]
     Active Substance: DICLOFENAC SODIUM
     Indication: SCIATICA
     Dosage: UNK UNK, QID
     Dates: start: 20170628, end: 20170703
  2. DICLOFENAC SODIUM. [Suspect]
     Active Substance: DICLOFENAC SODIUM
     Dosage: UNK, BID
     Dates: start: 20170628, end: 20170703

REACTIONS (8)
  - Dysarthria [Recovered/Resolved]
  - Off label use [Unknown]
  - Transient ischaemic attack [Recovered/Resolved]
  - Gastric disorder [Recovered/Resolved]
  - Drug administered at inappropriate site [Unknown]
  - Malaise [Recovered/Resolved]
  - Adverse drug reaction [Unknown]
  - Inappropriate schedule of drug administration [Unknown]

NARRATIVE: CASE EVENT DATE: 20170629
